FAERS Safety Report 12109669 (Version 1)
Quarter: 2016Q1

REPORT INFORMATION
  Report Type: Spontaneous
  Country: US (occurrence: US)
  Receive Date: 20160224
  Receipt Date: 20160224
  Transmission Date: 20160526
  Serious: No
  Sender: FDA-Public Use
  Company Number: US-BAYER-2016-033931

PATIENT
  Sex: Female

DRUGS (1)
  1. MIRALAX [Suspect]
     Active Substance: POLYETHYLENE GLYCOL 3350
     Indication: INFREQUENT BOWEL MOVEMENTS
     Dosage: 2 DF, QD
     Route: 048

REACTIONS (5)
  - Circumstance or information capable of leading to medication error [None]
  - Product physical consistency issue [None]
  - Product use issue [None]
  - Product solubility abnormal [None]
  - Off label use [None]
